FAERS Safety Report 5589994-9 (Version None)
Quarter: 2008Q1

REPORT INFORMATION
  Report Type: 
  Country: None (occurrence: None)
  Receive Date: 20080114
  Receipt Date: 20080102
  Transmission Date: 20080703
  Serious: Yes (Other)
  Sender: FDA-Public Use
  Company Number: US-ASTRAZENECA-2007UW09601

PATIENT
  Age: 49 Year
  Sex: Female

DRUGS (6)
  1. SEROQUEL [Suspect]
     Indication: BIPOLAR DISORDER
     Dosage: 100-400 MG
     Route: 048
     Dates: start: 20000101, end: 20060731
  2. SEROQUEL [Suspect]
     Indication: DEPRESSION
     Dosage: 100-400 MG
     Route: 048
     Dates: start: 20000101, end: 20060731
  3. SEROQUEL [Suspect]
     Route: 048
  4. SEROQUEL [Suspect]
     Route: 048
  5. RISPERDAL [Concomitant]
     Indication: BIPOLAR DISORDER
  6. RISPERDAL [Concomitant]
     Indication: DEPRESSION

REACTIONS (3)
  - NEUROPATHY PERIPHERAL [None]
  - PANCREATITIS ACUTE [None]
  - TYPE 2 DIABETES MELLITUS [None]
